FAERS Safety Report 18235745 (Version 1)
Quarter: 2020Q3

REPORT INFORMATION
  Report Type: Spontaneous
  Country: AU (occurrence: AU)
  Receive Date: 20200905
  Receipt Date: 20200905
  Transmission Date: 20201103
  Serious: Yes (Hospitalization, Other)
  Sender: FDA-Public Use
  Company Number: AU-MACLEODS PHARMACEUTICALS US LTD-MAC2020027890

PATIENT

DRUGS (2)
  1. QUETIAPINE. [Suspect]
     Active Substance: QUETIAPINE
     Indication: DEPRESSION
     Dosage: 1200 MILLIGRAM
     Route: 048
  2. CLOMIPRAMINE [Concomitant]
     Active Substance: CLOMIPRAMINE
     Indication: OBSESSIVE-COMPULSIVE DISORDER
     Dosage: 150 MILLIGRAM, QD, NIGHT
     Route: 065

REACTIONS (8)
  - Brachial plexus injury [Recovering/Resolving]
  - Acute kidney injury [Recovered/Resolved]
  - Toxicity to various agents [Recovering/Resolving]
  - Myositis [Recovering/Resolving]
  - Rhabdomyolysis [Recovering/Resolving]
  - Intentional overdose [Recovering/Resolving]
  - Compartment syndrome [Recovering/Resolving]
  - Intentional product misuse [Recovering/Resolving]
